FAERS Safety Report 20315275 (Version 1)
Quarter: 2022Q1

REPORT INFORMATION
  Report Type: Spontaneous
  Country: US (occurrence: US)
  Receive Date: 20220110
  Receipt Date: 20220110
  Transmission Date: 20220423
  Serious: No
  Sender: FDA-Public Use
  Company Number: US-GLAXOSMITHKLINE-US2022AMR000355

PATIENT
  Age: 39 Year
  Sex: Male

DRUGS (2)
  1. ZEJULA [Suspect]
     Active Substance: NIRAPARIB
     Indication: Testis cancer
     Dosage: 300 MG
     Dates: start: 20211223
  2. ZEJULA [Suspect]
     Active Substance: NIRAPARIB
     Indication: Metastases to central nervous system

REACTIONS (1)
  - Off label use [Unknown]

NARRATIVE: CASE EVENT DATE: 20211223
